FAERS Safety Report 8519764 (Version 3)
Quarter: 2014Q1

REPORT INFORMATION
  Report Type: Spontaneous
  Country: US (occurrence: US)
  Receive Date: 20120418
  Receipt Date: 20140228
  Transmission Date: 20141002
  Serious: Yes (Other)
  Sender: FDA-Public Use
  Company Number: US-ASTRAZENECA-2011SE46728

PATIENT
  Age: 854 Month
  Sex: Female
  Weight: 58.1 kg

DRUGS (9)
  1. NEXIUM [Suspect]
     Indication: GASTROOESOPHAGEAL REFLUX DISEASE
     Dosage: TWICE A DAY
     Route: 048
  2. NEXIUM [Suspect]
     Indication: GASTROOESOPHAGEAL REFLUX DISEASE
     Route: 048
  3. NEXIUM [Suspect]
     Indication: GASTROOESOPHAGEAL REFLUX DISEASE
     Route: 048
  4. CELEBREX [Concomitant]
  5. PREMARIN [Concomitant]
  6. PREDNISONE [Concomitant]
     Route: 048
  7. SPIRIVA [Concomitant]
     Indication: DYSPNOEA
     Route: 048
     Dates: start: 201312
  8. OTHER DRUGS [Concomitant]
     Dosage: GENERIC
  9. OTHER DRUGS [Concomitant]
     Dosage: OVER THE COUNTER DRUGS

REACTIONS (8)
  - Lung neoplasm malignant [Not Recovered/Not Resolved]
  - Gastrooesophageal reflux disease [Unknown]
  - Dyspepsia [Unknown]
  - Malaise [Unknown]
  - Malaise [Unknown]
  - Intentional drug misuse [Unknown]
  - Off label use [Not Recovered/Not Resolved]
  - Drug dose omission [Unknown]
